FAERS Safety Report 8849674 (Version 1)
Quarter: 2012Q4

REPORT INFORMATION
  Report Type: 
  Country: CN (occurrence: CN)
  Receive Date: 20121019
  Receipt Date: 20121019
  Transmission Date: 20130627
  Serious: Yes (Other)
  Sender: FDA-Public Use
  Company Number: CN-SANOFI-AVENTIS-2012SA074873

PATIENT
  Age: 65 Year
  Sex: Female

DRUGS (7)
  1. OXALIPLATIN [Suspect]
     Indication: GASTRIC CANCER
     Route: 041
     Dates: start: 20110810, end: 20110810
  2. OXALIPLATIN [Suspect]
     Indication: GASTRIC CANCER
     Route: 041
     Dates: start: 201107, end: 201107
  3. CALCIUM FOLINATE [Concomitant]
     Indication: GASTRIC CANCER
     Dosage: on day2-day 5 of every cycle; taken once
     Route: 041
     Dates: start: 201107
  4. CALCIUM FOLINATE [Concomitant]
     Indication: GASTRIC CANCER
     Dosage: on day2-day 5 of every cycle
     Route: 041
     Dates: start: 20110811
  5. WATER [Concomitant]
     Dosage: more than 1000 ml/day
     Route: 048
     Dates: start: 20110810
  6. FLUOROURACIL [Concomitant]
     Indication: GASTRIC CANCER
     Dosage: on day 1-5 of every cycle; taken once
     Route: 041
     Dates: start: 201107
  7. FLUOROURACIL [Concomitant]
     Indication: GASTRIC CANCER
     Dosage: on day 1-5 of every cycle
     Route: 041
     Dates: start: 20110810

REACTIONS (26)
  - Hypersensitivity [Recovered/Resolved]
  - Asthenia [Recovered/Resolved]
  - Loss of consciousness [Recovered/Resolved]
  - Tubulointerstitial nephritis [Recovered/Resolved]
  - Proteinuria [Recovered/Resolved]
  - Haematuria [Recovered/Resolved]
  - Glucose urine [Recovered/Resolved]
  - Red blood cells urine [Recovered/Resolved]
  - Electrolyte imbalance [Recovered/Resolved]
  - Blood potassium decreased [Recovered/Resolved]
  - Blood sodium decreased [Recovered/Resolved]
  - Blood chloride decreased [Recovered/Resolved]
  - Blood calcium decreased [Recovered/Resolved]
  - Metabolic encephalopathy [Recovered/Resolved]
  - Muscle twitching [Recovered/Resolved]
  - Convulsion [Recovered/Resolved]
  - Body temperature increased [Recovered/Resolved]
  - Venous oxygen partial pressure increased [Recovered/Resolved]
  - Carbon dioxide decreased [Recovered/Resolved]
  - Fatigue [Recovered/Resolved]
  - Amnesia [Recovered/Resolved]
  - Insomnia [Recovered/Resolved]
  - Impaired work ability [Recovered/Resolved]
  - Disorientation [Recovered/Resolved]
  - Tetany [Recovered/Resolved]
  - Coma [Recovered/Resolved]
